FAERS Safety Report 11795840 (Version 2)
Quarter: 2015Q4

REPORT INFORMATION
  Report Type: Spontaneous
  Country: GB (occurrence: GB)
  Receive Date: 20151203
  Receipt Date: 20151230
  Transmission Date: 20160305
  Serious: Yes (Hospitalization, Other)
  Sender: FDA-Public Use
  Company Number: GB-ROCHE-1671436

PATIENT
  Age: 48 Year
  Sex: Female

DRUGS (4)
  1. OMALIZUMAB [Suspect]
     Active Substance: OMALIZUMAB
     Indication: ANGIOEDEMA
  2. CETRIZINE [Concomitant]
     Active Substance: CETIRIZINE HYDROCHLORIDE
     Route: 065
  3. MONTELUKAST [Concomitant]
     Active Substance: MONTELUKAST SODIUM
     Route: 065
  4. OMALIZUMAB [Suspect]
     Active Substance: OMALIZUMAB
     Indication: CHRONIC SPONTANEOUS URTICARIA
     Route: 058
     Dates: start: 201202, end: 201501

REACTIONS (9)
  - Cellulitis [Recovered/Resolved]
  - Cardiac failure [Recovered/Resolved]
  - Product use issue [Unknown]
  - Limb discomfort [Recovered/Resolved]
  - Pericardial effusion [Recovered/Resolved]
  - Acute kidney injury [Recovered/Resolved]
  - Pleural effusion [Recovered/Resolved]
  - Renal failure [Unknown]
  - Lung consolidation [Recovered/Resolved]

NARRATIVE: CASE EVENT DATE: 20150124
